APPROVED DRUG PRODUCT: TIGECYCLINE
Active Ingredient: TIGECYCLINE
Strength: 50MG/VIAL
Dosage Form/Route: POWDER;INTRAVENOUS
Application: A205722 | Product #001
Applicant: XELLIA PHARMACEUTICALS APS
Approved: Oct 18, 2019 | RLD: No | RS: No | Type: DISCN